FAERS Safety Report 13233723 (Version 14)
Quarter: 2019Q2

REPORT INFORMATION
  Report Type: Report from Study
  Country: None (occurrence: US)
  Receive Date: 20170215
  Receipt Date: 20190627
  Transmission Date: 20190711
  Serious: Yes (Hospitalization, Other)
  Sender: FDA-Public Use
  Company Number: US-ABBVIE-17K-163-1868315-00

PATIENT
  Age: 46 Year
  Sex: Female

DRUGS (8)
  1. HUMIRA [Suspect]
     Active Substance: ADALIMUMAB
     Indication: COLITIS ULCERATIVE
     Route: 058
     Dates: start: 20150422
  2. METHOTREXATE. [Suspect]
     Active Substance: METHOTREXATE
     Indication: PRODUCT USED FOR UNKNOWN INDICATION
     Route: 065
  3. HUMIRA [Suspect]
     Active Substance: ADALIMUMAB
     Route: 058
     Dates: start: 20171201
  4. PREDNISONE. [Suspect]
     Active Substance: PREDNISONE
     Indication: PRODUCT USED FOR UNKNOWN INDICATION
     Route: 065
  5. HUMIRA [Suspect]
     Active Substance: ADALIMUMAB
     Indication: ANKYLOSING SPONDYLITIS
     Route: 058
     Dates: start: 20160422
  6. HUMIRA [Suspect]
     Active Substance: ADALIMUMAB
     Indication: CROHN^S DISEASE
     Route: 058
     Dates: end: 201711
  7. REMICADE [Suspect]
     Active Substance: INFLIXIMAB
     Indication: PRODUCT USED FOR UNKNOWN INDICATION
     Route: 065
  8. METHOTREXATE. [Suspect]
     Active Substance: METHOTREXATE
     Route: 065

REACTIONS (72)
  - Systemic lupus erythematosus rash [Unknown]
  - Musculoskeletal stiffness [Recovered/Resolved]
  - Documented hypersensitivity to administered product [Unknown]
  - Fear of injection [Recovering/Resolving]
  - Amnesia [Recovered/Resolved]
  - Choking [Unknown]
  - Cough [Recovered/Resolved]
  - Polyp [Unknown]
  - Dental caries [Unknown]
  - Injection site pain [Recovered/Resolved]
  - Headache [Recovered/Resolved]
  - Influenza [Recovered/Resolved]
  - Device dislocation [Recovered/Resolved]
  - Wrong technique in product usage process [Unknown]
  - Inflammatory bowel disease [Unknown]
  - Injection site haemorrhage [Recovered/Resolved]
  - Abdominal pain upper [Not Recovered/Not Resolved]
  - Anaphylactic shock [Unknown]
  - White blood cell count decreased [Unknown]
  - Procedural pain [Unknown]
  - Haemorrhage [Unknown]
  - Fatigue [Unknown]
  - Arthritis [Unknown]
  - Seasonal allergy [Unknown]
  - Dehydration [Recovered/Resolved]
  - Back pain [Unknown]
  - Pyrexia [Recovered/Resolved]
  - Constipation [Recovering/Resolving]
  - Sneezing [Unknown]
  - Glycosylated haemoglobin decreased [Recovering/Resolving]
  - Abdominal distension [Unknown]
  - Injection site reaction [Recovered/Resolved with Sequelae]
  - Pain [Unknown]
  - Injection site bruising [Unknown]
  - Injection site haemorrhage [Unknown]
  - Breast abscess [Recovered/Resolved]
  - Meningitis [Recovered/Resolved]
  - Wrong technique in product usage process [Unknown]
  - Overweight [Unknown]
  - Musculoskeletal stiffness [Unknown]
  - Hypertension [Recovering/Resolving]
  - Respiratory tract infection viral [Unknown]
  - Hepatic enzyme increased [Not Recovered/Not Resolved]
  - Pyrexia [Recovered/Resolved]
  - Nasopharyngitis [Unknown]
  - Respiratory rate increased [Recovered/Resolved]
  - Hypotension [Recovered/Resolved]
  - Cough [Unknown]
  - Asthma [Unknown]
  - Pneumonia [Recovering/Resolving]
  - Drug ineffective [Unknown]
  - Aphonia [Unknown]
  - Drug specific antibody [Unknown]
  - Papule [Unknown]
  - Epistaxis [Recovered/Resolved]
  - Somnolence [Unknown]
  - Malaise [Unknown]
  - Crohn^s disease [Unknown]
  - Vertigo [Recovered/Resolved]
  - Stress [Unknown]
  - Injection site pain [Unknown]
  - Headache [Recovered/Resolved]
  - Headache [Unknown]
  - Dehydration [Not Recovered/Not Resolved]
  - Condition aggravated [Recovered/Resolved]
  - Diabetes mellitus [Recovering/Resolving]
  - Plantar fasciitis [Unknown]
  - Respiratory tract congestion [Unknown]
  - Nervousness [Unknown]
  - Anxiety [Unknown]
  - Allergic sinusitis [Recovered/Resolved]
  - Fall [Unknown]

NARRATIVE: CASE EVENT DATE: 2015
